FAERS Safety Report 8884819 (Version 2)
Quarter: 2013Q1

REPORT INFORMATION
  Report Type: Spontaneous
  Country: CA (occurrence: CA)
  Receive Date: 20121102
  Receipt Date: 20130125
  Transmission Date: 20140127
  Serious: Yes (Life-Threatening, Hospitalization)
  Sender: FDA-Public Use
  Company Number: CA-B.I. PHARMACEUTICALS,INC./RIDGEFIELD-2012-CN-02200CN

PATIENT
  Age: 51 Year
  Sex: Female
  Weight: 61 kg

DRUGS (2)
  1. PRADAX [Suspect]
     Indication: CARDIAC VALVE PROSTHESIS USER
     Dosage: 300 MG
     Route: 048
     Dates: start: 20110801, end: 20111104
  2. PRADAX [Suspect]
     Indication: ANTICOAGULANT THERAPY

REACTIONS (6)
  - Cardiac arrest [Recovered/Resolved with Sequelae]
  - Cardiac valve replacement complication [Recovered/Resolved with Sequelae]
  - Dyspnoea [Recovered/Resolved with Sequelae]
  - Thrombosis [Recovered/Resolved with Sequelae]
  - Procedural haemorrhage [Recovered/Resolved with Sequelae]
  - Amnesia [Unknown]
